FAERS Safety Report 21948781 (Version 1)
Quarter: 2023Q1

REPORT INFORMATION
  Report Type: Spontaneous
  Country: US (occurrence: US)
  Receive Date: 20230203
  Receipt Date: 20230203
  Transmission Date: 20230418
  Serious: Yes (Hospitalization, Other)
  Sender: FDA-Public Use
  Company Number: US-SA-2023SA037728

PATIENT
  Age: 58 Year
  Sex: Male

DRUGS (3)
  1. DUPILUMAB [Suspect]
     Active Substance: DUPILUMAB
     Indication: Chronic sinusitis
     Dosage: UNK UNK, 1X
  2. CORTICOSTEROID NOS [Concomitant]
     Active Substance: CORTICOSTEROID NOS
     Indication: Chronic sinusitis
     Dosage: UNK
     Route: 048
  3. CORTICOSTEROID NOS [Concomitant]
     Active Substance: CORTICOSTEROID NOS
     Dosage: UNK
     Route: 055

REACTIONS (22)
  - Eosinophilic granulomatosis with polyangiitis [Recovering/Resolving]
  - Asthenia [Recovering/Resolving]
  - Arthralgia [Recovering/Resolving]
  - Oedema peripheral [Recovering/Resolving]
  - Rash [Recovering/Resolving]
  - Hypertension [Recovering/Resolving]
  - Tachycardia [Recovering/Resolving]
  - Blister [Recovering/Resolving]
  - Macule [Recovering/Resolving]
  - Leukocytosis [Recovering/Resolving]
  - Eosinophilia [Recovering/Resolving]
  - Anaemia [Recovering/Resolving]
  - Hyperkalaemia [Recovering/Resolving]
  - Soft tissue swelling [Recovering/Resolving]
  - Serum sickness-like reaction [Recovering/Resolving]
  - Acute kidney injury [Recovering/Resolving]
  - Hyperkeratosis [Recovering/Resolving]
  - Cell death [Recovering/Resolving]
  - Hypersensitivity vasculitis [Recovering/Resolving]
  - Bronchial wall thickening [Recovering/Resolving]
  - Glomerulonephritis rapidly progressive [Recovering/Resolving]
  - Off label use [Recovering/Resolving]
